FAERS Safety Report 9210173 (Version 2)
Quarter: 2013Q2

REPORT INFORMATION
  Report Type: Spontaneous
  Country: FR (occurrence: FR)
  Receive Date: 20130404
  Receipt Date: 20130614
  Transmission Date: 20140414
  Serious: Yes (Hospitalization)
  Sender: FDA-Public Use
  Company Number: FR-SANOFI-AVENTIS-2013SA033676

PATIENT
  Age: 78 Year
  Sex: Male

DRUGS (8)
  1. PLAVIX [Suspect]
     Indication: PRODUCT USED FOR UNKNOWN INDICATION
     Route: 048
     Dates: end: 20121209
  2. AUGMENTIN [Suspect]
     Indication: INFECTION
     Route: 048
     Dates: start: 201211, end: 201211
  3. ELISOR [Suspect]
     Indication: PRODUCT USED FOR UNKNOWN INDICATION
     Route: 048
     Dates: end: 20121209
  4. INSULIN [Concomitant]
     Route: 058
  5. RAMIPRIL [Concomitant]
     Route: 048
  6. MONO-TILDIEM [Concomitant]
     Route: 048
  7. KARDEGIC [Concomitant]
     Route: 048
  8. MOPRAL [Concomitant]
     Route: 048

REACTIONS (2)
  - Hepatocellular injury [Recovered/Resolved]
  - Cholestasis [Recovered/Resolved]
